FAERS Safety Report 8294179-1 (Version None)
Quarter: 2012Q2

REPORT INFORMATION
  Report Type: 
  Country: None (occurrence: None)
  Receive Date: 20120418
  Receipt Date: 20120412
  Transmission Date: 20120825
  Serious: Yes (Hospitalization, Disabling, Other)
  Sender: FDA-Public Use
  Company Number: PHHY2012MX031288

PATIENT
  Sex: Male

DRUGS (2)
  1. INSULIN [Concomitant]
     Indication: DIABETES MELLITUS
     Dosage: 40 IU, DAILY
     Route: 058
  2. TRILEPTAL [Suspect]
     Indication: PAIN IN EXTREMITY
     Dosage: 1 DF, DAILY
     Route: 048
     Dates: start: 20120212, end: 20120327

REACTIONS (4)
  - EXTREMITY NECROSIS [None]
  - PAIN [None]
  - POOR PERIPHERAL CIRCULATION [None]
  - DIABETES MELLITUS [None]
